FAERS Safety Report 9035771 (Version 1)
Quarter: 2013Q1

REPORT INFORMATION
  Report Type: Report from Study
  Country: US (occurrence: US)
  Receive Date: 20130129
  Receipt Date: 20130129
  Transmission Date: 20140127
  Serious: No
  Sender: FDA-Public Use
  Company Number: US-ABBOTT-12P-163-0924860-00

PATIENT
  Age: 60 Year
  Sex: Male

DRUGS (4)
  1. HUMIRA 40 MG/0.8 ML PEN [Suspect]
     Indication: ANKYLOSING SPONDYLITIS
     Dosage: INITIAL DOSE
  2. VICODIN [Concomitant]
     Indication: PAIN
  3. HYZAAR [Concomitant]
     Indication: HYPERTENSION
  4. CAFERGOT [Concomitant]
     Indication: MIGRAINE

REACTIONS (1)
  - Herpes zoster [Recovering/Resolving]
